FAERS Safety Report 7849430-6 (Version None)
Quarter: 2011Q4

REPORT INFORMATION
  Report Type: 
  Country: None (occurrence: None)
  Receive Date: 20111024
  Receipt Date: 20111006
  Transmission Date: 20120403
  Serious: Yes (Hospitalization)
  Sender: FDA-Public Use
  Company Number: COL_09972_2011

PATIENT
  Sex: Male

DRUGS (1)
  1. SPEED STICK FRESH GEL ANTIPERSPIRANT [Suspect]
     Dosage: )1 DF QD, [ A FEW SWIPES UNDER EACH ARM] / CUTANEOUS)
     Route: 003
     Dates: end: 20110930

REACTIONS (8)
  - INFECTION [None]
  - HYPOAESTHESIA [None]
  - SWEAT GLAND DISORDER [None]
  - AXILLARY MASS [None]
  - FLUID RETENTION [None]
  - INFLAMMATION [None]
  - PARAESTHESIA [None]
  - AXILLARY PAIN [None]
